FAERS Safety Report 9065191 (Version 1)
Quarter: 2013Q1

REPORT INFORMATION
  Report Type: Spontaneous
  Country: DK (occurrence: DE)
  Receive Date: 20130130
  Receipt Date: 20130130
  Transmission Date: 20140127
  Serious: Yes (Other)
  Sender: FDA-Public Use
  Company Number: DE-FRI-1000042240

PATIENT
  Age: 49 Year
  Sex: Male

DRUGS (1)
  1. CITALOPRAM [Suspect]
     Route: 048

REACTIONS (2)
  - Sialoadenitis [Recovered/Resolved]
  - Dry mouth [Recovered/Resolved]
